FAERS Safety Report 8891028 (Version 1)
Quarter: 2012Q4

REPORT INFORMATION
  Report Type: 
  Country: DE (occurrence: DE)
  Receive Date: 20121107
  Receipt Date: 20121107
  Transmission Date: 20130627
  Serious: Yes (Other)
  Sender: FDA-Public Use
  Company Number: DE-ASTRAZENECA-2012SE81064

PATIENT
  Age: 23376 Day
  Sex: Male

DRUGS (4)
  1. BELOC ZOK MITE [Suspect]
     Indication: ARRHYTHMIA
     Dosage: 47.5 MG
     Route: 048
     Dates: start: 2003
  2. BELOC ZOK MITE [Suspect]
     Indication: ARRHYTHMIA
     Dosage: 47.5 MG
     Route: 048
     Dates: start: 2012
  3. BELOC ZOK MITE [Suspect]
     Indication: ARRHYTHMIA
     Dosage: one tablet in the morning and half a tablet in the evening
     Route: 048
  4. MARCUMAR [Concomitant]

REACTIONS (4)
  - Arrhythmia [Unknown]
  - Tinnitus [Not Recovered/Not Resolved]
  - Psoriasis [Not Recovered/Not Resolved]
  - Drug ineffective [Unknown]
